FAERS Safety Report 20049435 (Version 3)
Quarter: 2021Q4

REPORT INFORMATION
  Report Type: Spontaneous
  Country: US (occurrence: US)
  Receive Date: 20211109
  Receipt Date: 20211207
  Transmission Date: 20220304
  Serious: No
  Sender: FDA-Public Use
  Company Number: US-SA-SAC20211105000199

PATIENT
  Age: 72 Year
  Sex: Female

DRUGS (11)
  1. DUPIXENT [Suspect]
     Active Substance: DUPILUMAB
     Indication: Asthma
     Dosage: 300 MG, QOW
     Route: 058
     Dates: start: 20210729
  2. GRALISE [Concomitant]
     Active Substance: GABAPENTIN
  3. PROAIR RESPICLICK [Concomitant]
     Active Substance: ALBUTEROL SULFATE
  4. PROAIR RESPICLICK [Concomitant]
     Active Substance: ALBUTEROL SULFATE
  5. LORAZEPAM [Concomitant]
     Active Substance: LORAZEPAM
  6. TRAZODONE [Concomitant]
     Active Substance: TRAZODONE HYDROCHLORIDE
  7. MONTELUKAST [Concomitant]
     Active Substance: MONTELUKAST SODIUM
  8. ALBUTEROL SULFATE [Concomitant]
     Active Substance: ALBUTEROL SULFATE
  9. SIMVASTATIN [Concomitant]
     Active Substance: SIMVASTATIN
  10. VITAMIN D NOS [Concomitant]
     Active Substance: VITAMIN D NOS
  11. HYDROCHLOROTHIAZIDE [Concomitant]
     Active Substance: HYDROCHLOROTHIAZIDE

REACTIONS (5)
  - Asthma [Not Recovered/Not Resolved]
  - Dyspnoea [Not Recovered/Not Resolved]
  - Impaired quality of life [Not Recovered/Not Resolved]
  - Morbid thoughts [Not Recovered/Not Resolved]
  - Product use issue [Unknown]

NARRATIVE: CASE EVENT DATE: 20210729
